FAERS Safety Report 10339173 (Version 1)
Quarter: 2014Q3

REPORT INFORMATION
  Report Type: Other
  Country: KR (occurrence: KR)
  Receive Date: 20140724
  Receipt Date: 20140724
  Transmission Date: 20150326
  Serious: No
  Sender: FDA-Public Use
  Company Number: KR-LUPIN PHARMACEUTICALS INC.-2014-01096

PATIENT
  Age: 80 Year
  Sex: Male

DRUGS (16)
  1. FAMOTIDINE. [Suspect]
     Active Substance: FAMOTIDINE
     Dosage: 1:1 DILUTION WITH NACL
     Route: 065
  2. RANITIDINE [Suspect]
     Active Substance: RANITIDINE\RANITIDINE HYDROCHLORIDE
     Dosage: 1:10 DILUTION WITH NACL
     Route: 065
  3. CIMETIDINE [Suspect]
     Active Substance: CIMETIDINE
     Dosage: 1:10 DILUTION WITH NACL.
     Route: 065
  4. CIMETIDINE [Suspect]
     Active Substance: CIMETIDINE
     Dosage: 1:1 DILUTION WITH NACL.
     Route: 065
  5. TRIFLUSAL [Concomitant]
     Active Substance: TRIFLUSAL
     Indication: PRODUCT USED FOR UNKNOWN INDICATION
     Route: 065
  6. NITRATE [Concomitant]
     Indication: PRODUCT USED FOR UNKNOWN INDICATION
     Route: 065
  7. NICORANDIL [Concomitant]
     Active Substance: NICORANDIL
     Indication: PRODUCT USED FOR UNKNOWN INDICATION
     Route: 065
  8. RANITIDINE [Suspect]
     Active Substance: RANITIDINE\RANITIDINE HYDROCHLORIDE
     Indication: PRODUCT USED FOR UNKNOWN INDICATION
     Dosage: 1:100 DILUTION WITH NACL
     Route: 065
  9. BUDESONIDE + FORMOTEROL [Concomitant]
     Indication: PRODUCT USED FOR UNKNOWN INDICATION
     Route: 065
  10. CARVEDILOL. [Concomitant]
     Active Substance: CARVEDILOL
     Indication: PRODUCT USED FOR UNKNOWN INDICATION
     Route: 065
  11. FAMOTIDINE. [Suspect]
     Active Substance: FAMOTIDINE
     Dosage: 1:10 DILUTION WITH NACL
     Route: 065
  12. RANITIDINE [Suspect]
     Active Substance: RANITIDINE\RANITIDINE HYDROCHLORIDE
     Dosage: 1:1 DILUTION WITH NACL
     Route: 065
  13. CIMETIDINE [Suspect]
     Active Substance: CIMETIDINE
     Indication: PRODUCT USED FOR UNKNOWN INDICATION
     Dosage: 1:10000 DILUTION WITH NACL.
     Route: 065
  14. FAMOTIDINE. [Suspect]
     Active Substance: FAMOTIDINE
     Indication: PRODUCT USED FOR UNKNOWN INDICATION
     Dosage: 1:100 DILUTION WITH NACL
     Route: 065
  15. CIMETIDINE [Suspect]
     Active Substance: CIMETIDINE
     Dosage: 1:1000 DILUTION WITH NACL.
     Route: 065
  16. CIMETIDINE [Suspect]
     Active Substance: CIMETIDINE
     Dosage: 1:100 DILUTION WITH NACL.
     Route: 065

REACTIONS (1)
  - Drug hypersensitivity [Unknown]
